FAERS Safety Report 6527930-9 (Version None)
Quarter: 2010Q1

REPORT INFORMATION
  Report Type: 
  Country: None (occurrence: None)
  Receive Date: 20100105
  Receipt Date: 20100105
  Transmission Date: 20100710
  Serious: No
  Sender: FDA-Public Use
  Company Number: None

PATIENT
  Age: 47 Year
  Sex: Female

DRUGS (2)
  1. PROMETHAZINE [Suspect]
     Indication: NAUSEA
     Dosage: 12.5 MG ONCE IV
     Route: 042
     Dates: start: 20090910, end: 20090910
  2. PROMETHAZINE [Suspect]
     Indication: VOMITING
     Dosage: 12.5 MG ONCE IV
     Route: 042
     Dates: start: 20090910, end: 20090910

REACTIONS (1)
  - EXTRAPYRAMIDAL DISORDER [None]
